FAERS Safety Report 4661617-2 (Version None)
Quarter: 2005Q2

REPORT INFORMATION
  Report Type: 
  Country: None (occurrence: None)
  Receive Date: 20050513
  Receipt Date: 20050506
  Transmission Date: 20051028
  Serious: Yes (Other)
  Sender: FDA-Public Use
  Company Number: 200514101GDDC

PATIENT
  Sex: 0

DRUGS (1)
  1. RIFAMPICIN [Suspect]
     Dosage: DOSE: NOT PROVIDED

REACTIONS (1)
  - BILE DUCT OBSTRUCTION [None]
